FAERS Safety Report 11488647 (Version 1)
Quarter: 2015Q3

REPORT INFORMATION
  Report Type: Spontaneous
  Country: US (occurrence: US)
  Receive Date: 20150910
  Receipt Date: 20150910
  Transmission Date: 20151125
  Serious: No
  Sender: FDA-Public Use
  Company Number: US-ROCHE-1577175

PATIENT
  Age: 55 Year
  Sex: Female

DRUGS (3)
  1. RIBAVIRIN. [Suspect]
     Active Substance: RIBAVIRIN
     Indication: HEPATITIS C
     Dosage: 200MG TAKE 3 TABS IN MORNING AND 2 TABS IN EVENING
     Route: 048
     Dates: start: 20150427
  2. PEGASYS [Suspect]
     Active Substance: PEGINTERFERON ALFA-2A
     Indication: HEPATITIS C
     Route: 058
     Dates: start: 20150427
  3. SOVALDI [Suspect]
     Active Substance: SOFOSBUVIR
     Indication: HEPATITIS C
     Route: 048
     Dates: start: 20150427

REACTIONS (5)
  - Nervousness [Not Recovered/Not Resolved]
  - Injection site pain [Recovered/Resolved]
  - Injection site haemorrhage [Recovered/Resolved]
  - Influenza [Recovered/Resolved]
  - Exposure via direct contact [Recovered/Resolved]

NARRATIVE: CASE EVENT DATE: 20150427
